FAERS Safety Report 6408151-7 (Version None)
Quarter: 2009Q4

REPORT INFORMATION
  Report Type: 
  Country: None (occurrence: None)
  Receive Date: 20091021
  Receipt Date: 20091009
  Transmission Date: 20100525
  Serious: Yes (Hospitalization)
  Sender: FDA-Public Use
  Company Number: FR-WYE-H11569709

PATIENT
  Sex: Female

DRUGS (18)
  1. INIPOMP [Suspect]
     Dosage: DAILY DOSE UNKNOWN
     Route: 048
     Dates: start: 20090830, end: 20090907
  2. HYDROCORTISONE [Suspect]
     Indication: ADDISON'S DISEASE
     Dosage: 20 MG
     Route: 048
     Dates: start: 20090819, end: 20090904
  3. NEXIUM [Suspect]
     Dosage: 40 MG
     Route: 048
     Dates: start: 20090820, end: 20090829
  4. LASILIX [Suspect]
     Dosage: UNKNOWN
     Route: 048
     Dates: start: 20090819, end: 20090829
  5. ACETYLSALICYLIC ACID [Suspect]
     Dosage: 100 MG
     Route: 048
     Dates: start: 20090819
  6. KETOPROFEN [Concomitant]
     Dosage: UNKNOWN
     Dates: end: 20090819
  7. KETOPROFEN [Concomitant]
     Dosage: UNKNOWN
     Dates: start: 20090829
  8. HALDOL [Suspect]
     Dosage: 5 GTT
     Route: 048
     Dates: start: 20090822, end: 20090826
  9. COLCHIMAX [Concomitant]
     Dosage: UNKNOWN
     Dates: end: 20090819
  10. COLCHIMAX [Concomitant]
     Dosage: UNKNOWN
     Dates: start: 20090829
  11. VALIUM [Concomitant]
     Dosage: UNKNOWN
     Dates: end: 20090819
  12. VALIUM [Concomitant]
     Dosage: UNKNOWN
     Dates: start: 20090829
  13. RAMIPRIL [Concomitant]
     Dosage: 5 MG
     Dates: end: 20090819
  14. RAMIPRIL [Concomitant]
     Dosage: 5 MG
     Dates: start: 20090829
  15. FELODIPINE [Concomitant]
     Dosage: 5 MG
     Dates: end: 20090819
  16. FELODIPINE [Concomitant]
     Dosage: 5 MG
     Dates: start: 20090829
  17. PLAVIX [Suspect]
     Dosage: UNSPECIFIED
     Route: 048
     Dates: start: 20090819, end: 20090910
  18. CARDENSIEL [Suspect]
     Dosage: 1.25 MG
     Route: 048
     Dates: start: 20090825

REACTIONS (1)
  - LEUKOCYTOCLASTIC VASCULITIS [None]
